FAERS Safety Report 16449241 (Version 1)
Quarter: 2019Q2

REPORT INFORMATION
  Report Type: Spontaneous
  Country: US (occurrence: US)
  Receive Date: 20190509
  Receipt Date: 20190509
  Transmission Date: 20190711
  Serious: No
  Sender: FDA-Public Use
  Company Number: None

PATIENT
  Age: 47 Year
  Sex: Female

DRUGS (1)
  1. LUPRON DEPOT [Suspect]
     Active Substance: LEUPROLIDE ACETATE
     Indication: ILL-DEFINED DISORDER
     Route: 030
     Dates: start: 20190308

REACTIONS (4)
  - Headache [None]
  - Weight increased [None]
  - Mood swings [None]
  - Musculoskeletal stiffness [None]

NARRATIVE: CASE EVENT DATE: 20190420
